FAERS Safety Report 25742843 (Version 1)
Quarter: 2025Q3

REPORT INFORMATION
  Report Type: Spontaneous
  Country: CA (occurrence: CA)
  Receive Date: 20250830
  Receipt Date: 20250830
  Transmission Date: 20251021
  Serious: Yes (Other)
  Sender: CELLTRION
  Company Number: CA-PFIZER INC-202400171574

PATIENT

DRUGS (19)
  1. INFLECTRA [Suspect]
     Active Substance: INFLIXIMAB-DYYB
     Indication: Crohn^s disease
     Dates: start: 20210303, end: 20211124
  2. INFLECTRA [Suspect]
     Active Substance: INFLIXIMAB-DYYB
     Indication: Colitis ulcerative
     Dates: start: 20220117
  3. INFLECTRA [Suspect]
     Active Substance: INFLIXIMAB-DYYB
     Dates: start: 20240321
  4. INFLECTRA [Suspect]
     Active Substance: INFLIXIMAB-DYYB
     Dates: start: 20240606
  5. INFLECTRA [Suspect]
     Active Substance: INFLIXIMAB-DYYB
     Dates: start: 20240801
  6. INFLECTRA [Suspect]
     Active Substance: INFLIXIMAB-DYYB
     Dates: start: 20241011
  7. INFLECTRA [Suspect]
     Active Substance: INFLIXIMAB-DYYB
     Dates: start: 20241206
  8. INFLECTRA [Suspect]
     Active Substance: INFLIXIMAB-DYYB
     Dates: start: 20250131
  9. INFLECTRA [Suspect]
     Active Substance: INFLIXIMAB-DYYB
     Dates: start: 20250627
  10. INFLECTRA [Suspect]
     Active Substance: INFLIXIMAB-DYYB
     Dates: start: 20250822
  11. AZATHIOPRINE [Concomitant]
     Active Substance: AZATHIOPRINE
  12. AZATHIOPRINE [Concomitant]
     Active Substance: AZATHIOPRINE
  13. BUDESONIDE [Concomitant]
     Active Substance: BUDESONIDE
  14. CONCERTA [Concomitant]
     Active Substance: METHYLPHENIDATE HYDROCHLORIDE
  15. HYDROCORTISONE [Concomitant]
     Active Substance: HYDROCORTISONE
     Indication: Premedication
     Dates: start: 20240801, end: 20240801
  16. HYDROCORTISONE [Concomitant]
     Active Substance: HYDROCORTISONE
     Dates: start: 20241011, end: 20241011
  17. HYDROCORTISONE [Concomitant]
     Active Substance: HYDROCORTISONE
     Dates: start: 20250131, end: 20250131
  18. HYDROCORTISONE [Concomitant]
     Active Substance: HYDROCORTISONE
     Dates: start: 20250627, end: 20250627
  19. HYDROCORTISONE [Concomitant]
     Active Substance: HYDROCORTISONE
     Dates: start: 20250822, end: 20250822

REACTIONS (17)
  - Blood pressure increased [Not Recovered/Not Resolved]
  - Illness [Not Recovered/Not Resolved]
  - Blister [Unknown]
  - Rash erythematous [Recovered/Resolved]
  - Heart rate increased [Unknown]
  - Skin papilloma [Not Recovered/Not Resolved]
  - Pharyngitis streptococcal [Unknown]
  - Sinusitis [Unknown]
  - Ear infection [Unknown]
  - Fatigue [Unknown]
  - Oedema peripheral [Recovered/Resolved]
  - Noninfective gingivitis [Recovering/Resolving]
  - Gingival pain [Recovering/Resolving]
  - Palpitations [Recovering/Resolving]
  - Influenza [Recovering/Resolving]
  - Viral infection [Recovering/Resolving]
  - Inappropriate schedule of product administration [Unknown]

NARRATIVE: CASE EVENT DATE: 20240101
